FAERS Safety Report 15430248 (Version 1)
Quarter: 2018Q4

REPORT INFORMATION
  Report Type: Spontaneous
  Country: US (occurrence: US)
  Receive Date: 20180926
  Receipt Date: 20180926
  Transmission Date: 20190204
  Serious: No
  Sender: FDA-Public Use
  Company Number: US-ASSERTIO THERAPEUTICS, INC.-US-2018DEP000098

PATIENT

DRUGS (7)
  1. DULOXETINE. [Concomitant]
     Active Substance: DULOXETINE
     Indication: PAIN
     Dosage: 20 MG, QD
     Route: 048
     Dates: start: 201701
  2. GABAPENTIN. [Suspect]
     Active Substance: GABAPENTIN
     Indication: OCCIPITAL NEURALGIA
     Dosage: 600 MG, TID
     Route: 048
     Dates: start: 201703, end: 201711
  3. TIAGABINE [Concomitant]
     Active Substance: TIAGABINE
     Indication: TRIGEMINAL NEURALGIA
     Dosage: 4 MG, QID
     Route: 048
  4. GRALISE [Suspect]
     Active Substance: GABAPENTIN
     Indication: OCCIPITAL NEURALGIA
  5. GABAPENTIN. [Suspect]
     Active Substance: GABAPENTIN
     Indication: TRIGEMINAL NEURALGIA
     Dosage: 600 MG, QID
     Route: 048
     Dates: start: 201711
  6. GRALISE [Suspect]
     Active Substance: GABAPENTIN
     Indication: TRIGEMINAL NEURALGIA
     Dosage: 600 MG, QD
     Route: 048
     Dates: start: 201612, end: 201711
  7. TIAGABINE [Concomitant]
     Active Substance: TIAGABINE
     Indication: OCCIPITAL NEURALGIA

REACTIONS (7)
  - Dizziness [Not Recovered/Not Resolved]
  - Insomnia [Not Recovered/Not Resolved]
  - Product use in unapproved indication [Unknown]
  - Paraesthesia [Not Recovered/Not Resolved]
  - Pain [Not Recovered/Not Resolved]
  - Drug titration error [Unknown]
  - Nausea [Not Recovered/Not Resolved]

NARRATIVE: CASE EVENT DATE: 201612
